FAERS Safety Report 10629552 (Version 1)
Quarter: 2014Q4

REPORT INFORMATION
  Report Type: Spontaneous
  Country: US (occurrence: US)
  Receive Date: 20141205
  Receipt Date: 20141205
  Transmission Date: 20150529
  Serious: No
  Sender: FDA-Public Use
  Company Number: US-BRISTOL-MYERS SQUIBB COMPANY-21323332

PATIENT
  Age: 97 Year
  Sex: Female
  Weight: 50.34 kg

DRUGS (1)
  1. BARACLUDE [Suspect]
     Active Substance: ENTECAVIR

REACTIONS (8)
  - Functional gastrointestinal disorder [Unknown]
  - Dyspnoea [Unknown]
  - Heart rate increased [Unknown]
  - Nausea [Unknown]
  - Chills [Unknown]
  - Fatigue [Unknown]
  - Dizziness [Unknown]
  - Myalgia [Unknown]
